FAERS Safety Report 25865751 (Version 1)
Quarter: 2025Q3

REPORT INFORMATION
  Report Type: Spontaneous
  Country: US (occurrence: US)
  Receive Date: 20250930
  Receipt Date: 20250930
  Transmission Date: 20251020
  Serious: No
  Sender: EMD SERONO INC
  Company Number: US-Merck Healthcare KGaA-2025049120

PATIENT
  Sex: Male

DRUGS (4)
  1. SEROSTIM [Suspect]
     Active Substance: SOMATROPIN
     Indication: Silver-Russell syndrome
  2. SEROSTIM [Suspect]
     Active Substance: SOMATROPIN
     Indication: Hypotonia
  3. SEROSTIM [Suspect]
     Active Substance: SOMATROPIN
     Indication: Developmental delay
  4. SEROSTIM [Suspect]
     Active Substance: SOMATROPIN
     Indication: Cognitive disorder

REACTIONS (1)
  - Needle fatigue [Unknown]
